FAERS Safety Report 22291262 (Version 4)
Quarter: 2023Q2

REPORT INFORMATION
  Report Type: Report from Study
  Country: US (occurrence: US)
  Receive Date: 20230506
  Receipt Date: 20230616
  Transmission Date: 20230722
  Serious: No
  Sender: FDA-Public Use
  Company Number: US-002147023-NVSC2023US104327

PATIENT
  Sex: Female

DRUGS (3)
  1. ENTRESTO [Suspect]
     Active Substance: SACUBITRIL\VALSARTAN
     Indication: Product used for unknown indication
     Dosage: UNK
     Route: 065
     Dates: start: 20221025
  2. ASPIRIN [Suspect]
     Active Substance: ASPIRIN
     Indication: Product used for unknown indication
     Dosage: UNK
     Route: 065
  3. PREDNISONE [Suspect]
     Active Substance: PREDNISONE
     Indication: Upper respiratory tract infection
     Dosage: UNK
     Route: 065

REACTIONS (11)
  - Troponin increased [Recovering/Resolving]
  - Hypertension [Unknown]
  - Blood sodium increased [Recovering/Resolving]
  - Blood calcium increased [Recovering/Resolving]
  - Blood potassium increased [Recovering/Resolving]
  - Blood glucose increased [Recovering/Resolving]
  - Upper respiratory tract infection [Unknown]
  - Throat clearing [Not Recovered/Not Resolved]
  - Dysphonia [Unknown]
  - Productive cough [Unknown]
  - Feeling abnormal [Unknown]
